FAERS Safety Report 25199193 (Version 1)
Quarter: 2025Q2

REPORT INFORMATION
  Report Type: Spontaneous
  Country: US (occurrence: None)
  Receive Date: 20250415
  Receipt Date: 20250415
  Transmission Date: 20250716
  Serious: Yes (Other)
  Sender: FDA-CTU
  Company Number: None

PATIENT
  Age: 50 Year
  Sex: Male

DRUGS (12)
  1. NEMLUVIO [Suspect]
     Active Substance: NEMOLIZUMAB-ILTO
     Indication: Neurodermatitis
     Route: 058
     Dates: start: 20250311
  2. AMLODIPINE/BENAZEPRIL 10/20 [Concomitant]
  3. HYDROCODNE-ACETAMINOPHEN [Concomitant]
  4. METHOCARBAMOL [Concomitant]
     Active Substance: METHOCARBAMOL
  5. KLOR-CON [Concomitant]
     Active Substance: POTASSIUM CHLORIDE
  6. VITAMIN B12 [Concomitant]
     Active Substance: CYANOCOBALAMIN
  7. ATORVASTATIN [Concomitant]
     Active Substance: ATORVASTATIN
  8. CETIRIZINE [Concomitant]
     Active Substance: CETIRIZINE HYDROCHLORIDE
  9. ASPIRIN [Concomitant]
     Active Substance: ASPIRIN
  10. DOCUSATE [Concomitant]
     Active Substance: DOCUSATE
  11. BUPROPION [Concomitant]
     Active Substance: BUPROPION
  12. TAMSULOSIN [Concomitant]
     Active Substance: TAMSULOSIN

REACTIONS (1)
  - Diarrhoea [None]
